FAERS Safety Report 11988850 (Version 1)
Quarter: 2016Q1

REPORT INFORMATION
  Report Type: Report from Study
  Country: CN (occurrence: CN)
  Receive Date: 20160202
  Receipt Date: 20160202
  Transmission Date: 20160526
  Serious: Yes (Hospitalization)
  Sender: FDA-Public Use
  Company Number: CN-GLAXOSMITHKLINE-Z0022893A

PATIENT
  Age: 28 Year
  Sex: Male
  Weight: 67 kg

DRUGS (7)
  1. LAMOTRIGINE. [Suspect]
     Active Substance: LAMOTRIGINE
     Indication: BIPOLAR I DISORDER
     Dosage: 25 MG, QOD
     Route: 048
     Dates: start: 20140421, end: 20140505
  2. LAMOTRIGINE. [Suspect]
     Active Substance: LAMOTRIGINE
     Dosage: 50 MG, QD
     Route: 048
     Dates: start: 20140519, end: 20140526
  3. LAMOTRIGINE. [Suspect]
     Active Substance: LAMOTRIGINE
     Dosage: 100 MG, QD
     Route: 048
     Dates: start: 20140527, end: 20140617
  4. LAMOTRIGINE. [Suspect]
     Active Substance: LAMOTRIGINE
     Dosage: 25 MG, QD
     Route: 048
     Dates: start: 20140506, end: 20140518
  5. LAMOTRIGINE. [Suspect]
     Active Substance: LAMOTRIGINE
     Dosage: 200 MG, QD
     Route: 048
     Dates: start: 20140618, end: 20140623
  6. LAMOTRIGINE. [Suspect]
     Active Substance: LAMOTRIGINE
     Dosage: 100 MG, QD
     Route: 048
     Dates: start: 20140624, end: 20140629
  7. TETANUS ANTITOXIN INJECTION [Concomitant]
     Indication: ANTIBIOTIC PROPHYLAXIS
     Dosage: 7.5 ML, SINGLE
     Route: 030
     Dates: start: 20140625, end: 20140625

REACTIONS (2)
  - Mania [Recovered/Resolved]
  - Head injury [Recovered/Resolved]

NARRATIVE: CASE EVENT DATE: 20140625
